FAERS Safety Report 12138894 (Version 3)
Quarter: 2016Q4

REPORT INFORMATION
  Report Type: Spontaneous
  Country: US (occurrence: US)
  Receive Date: 20160302
  Receipt Date: 20161123
  Transmission Date: 20170207
  Serious: Yes (Other)
  Sender: FDA-Public Use
  Company Number: US-009507513-1602USA012275

PATIENT
  Age: 23 Year
  Sex: Female
  Weight: 98.87 kg

DRUGS (1)
  1. NEXPLANON [Suspect]
     Active Substance: ETONOGESTREL
     Indication: CONTRACEPTION
     Dosage: EVERY 3 YEARS, LEFT ARM
     Route: 059
     Dates: start: 20150317

REACTIONS (9)
  - Pregnancy with implant contraceptive [Unknown]
  - Alopecia [Unknown]
  - Nausea [Unknown]
  - Complication associated with device [Not Recovered/Not Resolved]
  - Decreased appetite [Unknown]
  - Mood swings [Unknown]
  - Weight decreased [Unknown]
  - Migraine [Unknown]
  - Unintended pregnancy [Unknown]

NARRATIVE: CASE EVENT DATE: 201505
